FAERS Safety Report 13789349 (Version 1)
Quarter: 2017Q3

REPORT INFORMATION
  Report Type: Spontaneous
  Country: US (occurrence: US)
  Receive Date: 20170725
  Receipt Date: 20170725
  Transmission Date: 20171127
  Serious: No
  Sender: FDA-Public Use
  Company Number: US-UNITED THERAPEUTICS-UNT-2017-005741

PATIENT
  Age: 54 Year
  Sex: Female
  Weight: 111.57 kg

DRUGS (1)
  1. REMODULIN [Suspect]
     Active Substance: TREPROSTINIL
     Indication: PULMONARY ARTERIAL HYPERTENSION
     Dosage: 0.04 ?G/KG, CONTINUING
     Route: 058
     Dates: start: 20170104

REACTIONS (6)
  - Nasopharyngitis [Unknown]
  - Neuropathy peripheral [Unknown]
  - Dermatitis contact [Unknown]
  - Neuralgia [Unknown]
  - Dyspnoea exertional [Unknown]
  - Infusion site pain [Unknown]

NARRATIVE: CASE EVENT DATE: 20170424
